FAERS Safety Report 8467896-8 (Version None)
Quarter: 2012Q2

REPORT INFORMATION
  Report Type: 
  Country: None (occurrence: None)
  Receive Date: 20120626
  Receipt Date: 20120618
  Transmission Date: 20120825
  Serious: Yes (Death, Hospitalization)
  Sender: FDA-Public Use
  Company Number: US-BRISTOL-MYERS SQUIBB COMPANY-16692055

PATIENT
  Age: 63 Year
  Sex: Male
  Weight: 69 kg

DRUGS (6)
  1. CISPLATIN [Suspect]
     Indication: OESOPHAGEAL SQUAMOUS CELL CARCINOMA
     Dosage: LAST DOSE ON 21MAY12;REMOVED FROM PROTOCOL THERAPY ON 06-JUN-2012.
     Dates: start: 20120521
  2. CELEXA [Concomitant]
  3. TAXOL [Suspect]
     Indication: OESOPHAGEAL SQUAMOUS CELL CARCINOMA
     Dosage: LAST DOSE ON 21MAY12; REMOVED FROM PROTOCOL THERAPY ON 06-JUN-2012.
     Dates: start: 20120521
  4. SPIRIVA [Concomitant]
  5. ROXICET [Concomitant]
  6. NICOTINE [Concomitant]
     Dosage: PATCH

REACTIONS (6)
  - DYSPNOEA [None]
  - NEUTROPHIL COUNT DECREASED [None]
  - DECREASED APPETITE [None]
  - LUNG INFECTION [None]
  - SEPSIS [None]
  - ABDOMINAL PAIN [None]
